FAERS Safety Report 7864942-7 (Version None)
Quarter: 2011Q4

REPORT INFORMATION
  Report Type: 
  Country: None (occurrence: None)
  Receive Date: 20111028
  Receipt Date: 20100922
  Transmission Date: 20120403
  Serious: No
  Sender: FDA-Public Use
  Company Number: US-GLAXOSMITHKLINE-A0882659A

PATIENT
  Age: 71 Year
  Sex: Female

DRUGS (5)
  1. SPIRIVA [Concomitant]
  2. ADVAIR DISKUS 100/50 [Suspect]
     Indication: CHRONIC OBSTRUCTIVE PULMONARY DISEASE
     Dosage: 1PUFF TWICE PER DAY
     Route: 055
     Dates: start: 20100701
  3. POTASSIUM CITRATE [Concomitant]
  4. HERBS [Concomitant]
  5. VITAMIN TAB [Concomitant]

REACTIONS (4)
  - DYSPHONIA [None]
  - MUSCULOSKELETAL DISCOMFORT [None]
  - HEADACHE [None]
  - VISUAL IMPAIRMENT [None]
